FAERS Safety Report 18379809 (Version 3)
Quarter: 2021Q1

REPORT INFORMATION
  Report Type: Report from Study
  Country: US (occurrence: US)
  Receive Date: 20201014
  Receipt Date: 20210202
  Transmission Date: 20210419
  Serious: Yes (Other)
  Sender: FDA-Public Use
  Company Number: US-PFIZER INC-2020284569

PATIENT
  Age: 62 Year
  Sex: Male

DRUGS (1)
  1. IBRANCE [Suspect]
     Active Substance: PALBOCICLIB
     Indication: BREAST CANCER MALE
     Dosage: 125 MG, CYCLIC (DAILY, 21 DAYS ON AND 7 DAYS OFF)
     Route: 048
     Dates: start: 20200608

REACTIONS (9)
  - Weight increased [Unknown]
  - Product dose omission issue [Unknown]
  - Neuropathy peripheral [Unknown]
  - Diarrhoea [Recovered/Resolved]
  - Overdose [Unknown]
  - Syncope [Unknown]
  - Fatigue [Unknown]
  - Hepatic enzyme increased [Unknown]
  - Alopecia [Unknown]

NARRATIVE: CASE EVENT DATE: 2020
